FAERS Safety Report 22216003 (Version 1)
Quarter: 2023Q2

REPORT INFORMATION
  Report Type: Spontaneous
  Country: US (occurrence: US)
  Receive Date: 20230417
  Receipt Date: 20230417
  Transmission Date: 20230721
  Serious: Yes (Hospitalization)
  Sender: FDA-Public Use
  Company Number: US-ALVOGEN-2021-ALVOGEN-117281

PATIENT
  Age: 40 Year
  Sex: Female
  Weight: 79.4 kg

DRUGS (6)
  1. HYDROCODONE BITARTRATE [Suspect]
     Active Substance: HYDROCODONE BITARTRATE
     Indication: Pain
     Dosage: UNKNOWN MG, TOOK NIGHT BEFORE HOSPITALIZATION.
     Route: 048
     Dates: start: 20210613
  2. COVID-19 VACCINE NOS [Suspect]
     Active Substance: COVID-19 VACCINE NOS
     Indication: COVID-19
     Dosage: DOSE 2? SOLUTION FOR INJECTION, EUA
     Route: 030
     Dates: start: 20200922, end: 20200922
  3. AMBIEN [Suspect]
     Active Substance: ZOLPIDEM TARTRATE
     Indication: Fibromyalgia
     Dosage: 5 MG, BY MOUTH AT BEDTIME
     Route: 048
     Dates: start: 2020
  4. LYRICA [Concomitant]
     Active Substance: PREGABALIN
     Indication: Fibromyalgia
     Dates: start: 20190729
  5. WELLBUTRIN [Concomitant]
     Active Substance: BUPROPION HYDROCHLORIDE
     Indication: Major depression
     Dates: start: 20200330
  6. DULOXETINE [Concomitant]
     Active Substance: DULOXETINE
     Indication: Anxiety
     Dates: start: 20210616

REACTIONS (12)
  - Pneumonia [Recovered/Resolved]
  - Respiratory acidosis [Recovered/Resolved]
  - Acute respiratory failure [Recovered/Resolved]
  - Aspiration [Recovered/Resolved]
  - Hypoxia [Recovered/Resolved]
  - Hepatic steatosis [Unknown]
  - Drug abuse [Recovered/Resolved]
  - Dizziness [Recovered/Resolved]
  - Hypotension [Recovered/Resolved]
  - Somnolence [Recovered/Resolved]
  - Tinnitus [Recovered/Resolved]
  - Confusional state [Recovered/Resolved]

NARRATIVE: CASE EVENT DATE: 20210610
